FAERS Safety Report 9226810 (Version 1)
Quarter: 2013Q2

REPORT INFORMATION
  Report Type: Report from Study
  Country: CA (occurrence: CA)
  Receive Date: 20130412
  Receipt Date: 20130412
  Transmission Date: 20140414
  Serious: Yes (Other)
  Sender: FDA-Public Use
  Company Number: CA-JNJFOC-20130402226

PATIENT
  Sex: Male
  Weight: 79.8 kg

DRUGS (6)
  1. REMICADE [Suspect]
     Indication: RHEUMATOID ARTHRITIS
     Route: 042
     Dates: start: 20091201
  2. REMICADE [Suspect]
     Indication: CROHN^S DISEASE
     Route: 042
     Dates: start: 20091201
  3. CALCIUM [Concomitant]
     Route: 065
  4. VIT D [Concomitant]
     Route: 065
  5. IMURAN [Concomitant]
     Route: 065
  6. TYLENOL EXTRA STRENGTH [Concomitant]
     Route: 065

REACTIONS (1)
  - White blood cell count increased [Not Recovered/Not Resolved]
